FAERS Safety Report 18307963 (Version 2)
Quarter: 2020Q4

REPORT INFORMATION
  Report Type: Spontaneous
  Country: CH (occurrence: CH)
  Receive Date: 20200924
  Receipt Date: 20201002
  Transmission Date: 20210113
  Serious: Yes (Other)
  Sender: FDA-Public Use
  Company Number: CH-GLAXOSMITHKLINE-CH2020EME163128

PATIENT
  Sex: Female

DRUGS (1)
  1. BENLYSTA [Suspect]
     Active Substance: BELIMUMAB
     Indication: CUTANEOUS LUPUS ERYTHEMATOSUS
     Dosage: UNK

REACTIONS (3)
  - Cutaneous lupus erythematosus [Unknown]
  - Adverse drug reaction [Unknown]
  - Condition aggravated [Unknown]
